FAERS Safety Report 13720547 (Version 1)
Quarter: 2017Q3

REPORT INFORMATION
  Report Type: Spontaneous
  Country: US (occurrence: US)
  Receive Date: 20170706
  Receipt Date: 20170706
  Transmission Date: 20171127
  Serious: Yes (Other)
  Sender: FDA-Public Use
  Company Number: US-STRIDES ARCOLAB LIMITED-2017SP010378

PATIENT

DRUGS (7)
  1. EPINEPHRINE. [Concomitant]
     Active Substance: EPINEPHRINE
     Dosage: UNK
     Route: 065
  2. LIDOCAINE. [Concomitant]
     Active Substance: LIDOCAINE
     Indication: CATARACT OPERATION
     Dosage: UNK
     Route: 065
  3. VISCOELASTIC SUBSTANCES [Interacting]
     Active Substance: DEVICE
     Indication: CATARACT OPERATION
     Dosage: UNK
     Route: 031
  4. VANCOMYCIN [Interacting]
     Active Substance: VANCOMYCIN
     Dosage: 1 MG/0.1 ML, INTRAVITREAL
  5. LIDOCAINE. [Concomitant]
     Active Substance: LIDOCAINE
     Dosage: UNK
     Route: 065
  6. VANCOMYCIN [Suspect]
     Active Substance: VANCOMYCIN
     Indication: PROPHYLAXIS
     Dosage: 1 MG/0.1 ML, INTRACAMERAL
     Route: 031
  7. EPINEPHRINE. [Concomitant]
     Active Substance: EPINEPHRINE
     Indication: CATARACT OPERATION
     Dosage: UNK
     Route: 065

REACTIONS (8)
  - Retinal ischaemia [Not Recovered/Not Resolved]
  - Glaucoma [Unknown]
  - Type III immune complex mediated reaction [Unknown]
  - Retinal vasculitis [Not Recovered/Not Resolved]
  - Blindness [Not Recovered/Not Resolved]
  - Retinal vascular occlusion [Not Recovered/Not Resolved]
  - Retinal haemorrhage [Not Recovered/Not Resolved]
  - Drug interaction [Unknown]
